FAERS Safety Report 10349944 (Version 1)
Quarter: 2014Q3

REPORT INFORMATION
  Report Type: Spontaneous
  Country: US (occurrence: None)
  Receive Date: 20140728
  Receipt Date: 20140728
  Transmission Date: 20150326
  Serious: Yes (Disabling)
  Sender: FDA-Public Use
  Company Number: None

PATIENT
  Age: 19 Year
  Sex: Male
  Weight: 84.37 kg

DRUGS (1)
  1. OMNICEF [Suspect]
     Active Substance: CEFDINIR
     Indication: CYSTITIS
     Dosage: 2 PILLS X 5 DAYS
     Dates: start: 20140629, end: 20140704

REACTIONS (1)
  - Tendonitis [None]

NARRATIVE: CASE EVENT DATE: 20140629
